FAERS Safety Report 8385876-8 (Version None)
Quarter: 2012Q2

REPORT INFORMATION
  Report Type: 
  Country: None (occurrence: None)
  Receive Date: 20120525
  Receipt Date: 20120516
  Transmission Date: 20120825
  Serious: Yes (Other)
  Sender: FDA-Public Use
  Company Number: BR-US-EMD SERONO, INC.-7113587

PATIENT
  Sex: Male

DRUGS (1)
  1. REBIF [Suspect]
     Indication: RELAPSING-REMITTING MULTIPLE SCLEROSIS
     Route: 058
     Dates: start: 20111212

REACTIONS (10)
  - PYREXIA [None]
  - INJECTION SITE ERYTHEMA [None]
  - INFECTION SUSCEPTIBILITY INCREASED [None]
  - HYPOAESTHESIA [None]
  - HYPERHIDROSIS [None]
  - PARAESTHESIA [None]
  - INJECTION SITE MACULE [None]
  - FEELING HOT [None]
  - OROPHARYNGEAL PAIN [None]
  - MYALGIA [None]
